FAERS Safety Report 6960174-5 (Version None)
Quarter: 2010Q3

REPORT INFORMATION
  Report Type: 
  Country: None (occurrence: None)
  Receive Date: 20100901
  Receipt Date: 20100823
  Transmission Date: 20110219
  Serious: Yes (Hospitalization)
  Sender: FDA-Public Use
  Company Number: FR-ASTRAZENECA-2010SE39797

PATIENT
  Age: 25322 Day
  Sex: Male

DRUGS (3)
  1. CRESTOR [Suspect]
     Route: 048
     Dates: start: 20090701, end: 20100610
  2. TEMERIT [Suspect]
     Route: 048
     Dates: start: 20040101, end: 20100610
  3. CORENITEC [Suspect]
     Route: 048
     Dates: start: 20040101, end: 20100610

REACTIONS (2)
  - ANTINUCLEAR ANTIBODY INCREASED [None]
  - INTERSTITIAL LUNG DISEASE [None]
